FAERS Safety Report 8353987-9 (Version None)
Quarter: 2012Q2

REPORT INFORMATION
  Report Type: 
  Country: None (occurrence: None)
  Receive Date: 20120511
  Receipt Date: 20120508
  Transmission Date: 20120825
  Serious: Yes (Other)
  Sender: FDA-Public Use
  Company Number: US-PFIZER INC-2012112418

PATIENT
  Sex: Female
  Weight: 91.156 kg

DRUGS (12)
  1. PRISTIQ [Suspect]
     Indication: DEPRESSION
     Dosage: UNK, 1X/DAY
     Route: 048
     Dates: start: 20080601, end: 20090701
  2. VITAMIN D [Concomitant]
     Dosage: UNK
  3. ACETYLSALICYLIC ACID [Concomitant]
     Indication: ROSACEA
     Dosage: UNK
  4. DEHYDROEPIANDROSTERONE [Concomitant]
     Dosage: UNK
  5. PRISTIQ [Suspect]
     Dosage: UNK, 1X/DAY
     Route: 048
  6. DIAMOX [Concomitant]
     Dosage: UNK
  7. MULTI-VITAMINS [Concomitant]
     Dosage: UNK
  8. PRISTIQ [Suspect]
     Dosage: UNK, 2X/DAY
     Route: 048
  9. SYNTHROID [Concomitant]
     Dosage: UNK
  10. METFORMIN [Concomitant]
     Indication: POLYCYSTIC OVARIES
     Dosage: UNK
  11. WELCHOL [Concomitant]
     Dosage: UNK
  12. DIETHYLPROPION HYDROCHLORIDE TAB [Concomitant]
     Dosage: UNK

REACTIONS (13)
  - BLOOD CHOLESTEROL INCREASED [None]
  - WEIGHT DECREASED [None]
  - MALAISE [None]
  - DEPRESSION [None]
  - GAIT DISTURBANCE [None]
  - DIZZINESS [None]
  - NAUSEA [None]
  - EYE MOVEMENT DISORDER [None]
  - FEELING DRUNK [None]
  - LIMB DISCOMFORT [None]
  - NYSTAGMUS [None]
  - WITHDRAWAL SYNDROME [None]
  - WRONG TECHNIQUE IN DRUG USAGE PROCESS [None]
